FAERS Safety Report 4853253-X (Version None)
Quarter: 2005Q4

REPORT INFORMATION
  Report Type: 
  Country: None (occurrence: None)
  Receive Date: 20051212
  Receipt Date: 20051129
  Transmission Date: 20060501
  Serious: No
  Sender: FDA-Public Use
  Company Number: 2005-135254-NL

PATIENT
  Age: 26 Year
  Sex: Female

DRUGS (3)
  1. MIRTAZAPINE [Suspect]
     Indication: DEPRESSION
     Dosage: 45 MG
     Dates: start: 20050919, end: 20050925
  2. PIMOXIDE [Concomitant]
  3. SERTRALINE HYDROCHLORIDE [Concomitant]

REACTIONS (6)
  - AGGRESSION [None]
  - ANOREXIA [None]
  - DRY MOUTH [None]
  - HALLUCINATION [None]
  - RESTLESS LEGS SYNDROME [None]
  - SOMNOLENCE [None]
